FAERS Safety Report 8965604 (Version 1)
Quarter: 2012Q4

REPORT INFORMATION
  Report Type: Spontaneous
  Country: FR (occurrence: None)
  Receive Date: 20121206
  Receipt Date: 20121206
  Transmission Date: 20130627
  Serious: Yes (Life-Threatening, Other)
  Sender: FDA-Public Use
  Company Number: 2012034045

PATIENT
  Age: 49 Year
  Sex: Female

DRUGS (17)
  1. PRIVIGEN (IMMUNE GLOBULIN INTRAVENOUS (HUMAN) 10% LIQUID) [Suspect]
     Indication: PREVENTION
     Route: 042
     Dates: start: 20120911, end: 20120912
  2. ARANESP (DARBEPOETIN ALFA) [Concomitant]
  3. CELLCEPT (MYCOPHENOLATE MOFETIL) TABLET [Concomitant]
  4. INEXIUM (ESOMEPRAZOLE MAGNESIUM) [Concomitant]
  5. UVEDOSE (COLECALCIFEROL) [Concomitant]
  6. WELLVONE (ATOVAQUONE) [Concomitant]
  7. TENORMINE (ATENOLOL) [Concomitant]
  8. SODIUM BICARBONATE (SODIUM BICARBONATE) [Concomitant]
  9. GAVISCON (GAVISCON) [Concomitant]
  10. KARDEGIC (ACETYLSALICYLATE LYSINE) [Concomitant]
  11. PLAQUENIL (HYDROXYCHLOROQUINE PHOSPHATE) [Concomitant]
  12. TRIATEC (RAMIPRIL) [Concomitant]
  13. PROGRAF (TACROLIMUS) [Concomitant]
  14. SOLUPRED [Concomitant]
  15. ROVALCYTE (VALGANCICLOVIR) [Concomitant]
  16. TAHOR (ATORVASTATIN CALCIUM) [Concomitant]
  17. RITUXIMAB (RITUXIMAB) [Concomitant]

REACTIONS (4)
  - Thrombocytopenia [None]
  - Haemolytic anaemia [None]
  - Sepsis [None]
  - Off label use [None]
